FAERS Safety Report 13627806 (Version 2)
Quarter: 2017Q3

REPORT INFORMATION
  Report Type: Report from Study
  Country: US (occurrence: US)
  Receive Date: 20170607
  Receipt Date: 20170718
  Transmission Date: 20171127
  Serious: Yes (Other)
  Sender: FDA-Public Use
  Company Number: US-MALLINCKRODT-T201606350

PATIENT
  Age: 73 Year
  Sex: Female

DRUGS (2)
  1. REPOSITORY CORTICOTROPIN INJECTION [Suspect]
     Active Substance: CORTICOTROPIN
     Indication: PROTEINURIA
     Dosage: 80 UNITS / 1 ML, EVERY 3 DAYS / EVERY 72 HOURS
     Route: 058
     Dates: start: 20160727
  2. REPOSITORY CORTICOTROPIN INJECTION [Suspect]
     Active Substance: CORTICOTROPIN
     Indication: NEPHROTIC SYNDROME
     Dosage: 80 UNITS / 1 ML, EVERY 5 DAYS
     Route: 058
     Dates: start: 20160727

REACTIONS (5)
  - Blood creatinine increased [Not Recovered/Not Resolved]
  - Nasopharyngitis [Not Recovered/Not Resolved]
  - Hypertension [Recovering/Resolving]
  - Glomerular filtration rate decreased [Not Recovered/Not Resolved]
  - Protein total decreased [Not Recovered/Not Resolved]

NARRATIVE: CASE EVENT DATE: 2016
